FAERS Safety Report 8797723 (Version 2)
Quarter: 2015Q1

REPORT INFORMATION
  Report Type: Report from Study
  Country: US (occurrence: US)
  Receive Date: 20120919
  Receipt Date: 20150312
  Transmission Date: 20150721
  Serious: Yes (Death)
  Sender: FDA-Public Use
  Company Number: US-ROCHE-1123470

PATIENT
  Age: 47 Year
  Sex: Female

DRUGS (16)
  1. AVASTIN [Suspect]
     Active Substance: BEVACIZUMAB
     Route: 042
  2. TYLENOL [Concomitant]
     Active Substance: ACETAMINOPHEN
     Route: 048
  3. AVASTIN [Suspect]
     Active Substance: BEVACIZUMAB
     Indication: BRAIN NEOPLASM MALIGNANT
     Route: 042
  4. DECADRON [Concomitant]
     Active Substance: DEXAMETHASONE
     Route: 042
  5. TEMODAR [Concomitant]
     Active Substance: TEMOZOLOMIDE
     Route: 042
  6. HEPARIN [Concomitant]
     Active Substance: HEPARIN SODIUM
  7. DEXA [Concomitant]
     Route: 042
  8. AVASTIN [Suspect]
     Active Substance: BEVACIZUMAB
     Route: 042
  9. TEMODAR [Concomitant]
     Active Substance: TEMOZOLOMIDE
     Route: 042
  10. TEMODAR [Concomitant]
     Active Substance: TEMOZOLOMIDE
     Route: 042
  11. GRANISETRON [Concomitant]
     Active Substance: GRANISETRON
     Route: 042
  12. AVASTIN [Suspect]
     Active Substance: BEVACIZUMAB
     Route: 042
  13. BENADRYL [Concomitant]
     Active Substance: DIPHENHYDRAMINE HYDROCHLORIDE
     Route: 042
  14. CISPLATIN. [Concomitant]
     Active Substance: CISPLATIN
     Route: 042
  15. AVASTIN [Suspect]
     Active Substance: BEVACIZUMAB
     Route: 042
     Dates: start: 20060122
  16. ATROPINE [Concomitant]
     Active Substance: ATROPINE
     Route: 042

REACTIONS (6)
  - Erythema [Unknown]
  - Pruritus [Unknown]
  - Nausea [Unknown]
  - Burning sensation [Unknown]
  - Off label use [Unknown]
  - Death [Fatal]

NARRATIVE: CASE EVENT DATE: 20070721
